FAERS Safety Report 20703147 (Version 3)
Quarter: 2022Q2

REPORT INFORMATION
  Report Type: Spontaneous
  Country: US (occurrence: US)
  Receive Date: 20220413
  Receipt Date: 20220503
  Transmission Date: 20220721
  Serious: No
  Sender: FDA-Public Use
  Company Number: US-UNITED THERAPEUTICS-UNT-2022-007105

PATIENT
  Age: 70 Year
  Sex: Female
  Weight: 58.503 kg

DRUGS (5)
  1. TYVASO [Suspect]
     Active Substance: TREPROSTINIL
     Indication: Pulmonary arterial hypertension
     Dosage: UNK
     Dates: start: 20220310
  2. TYVASO [Suspect]
     Active Substance: TREPROSTINIL
     Dosage: 18-54 ?G, QID
     Dates: start: 202203
  3. TYVASO [Suspect]
     Active Substance: TREPROSTINIL
     Dosage: UNK
  4. AMBRISENTAN [Concomitant]
     Active Substance: AMBRISENTAN
     Indication: Product used for unknown indication
     Dosage: UNK
     Route: 065
  5. TADALAFIL [Concomitant]
     Active Substance: TADALAFIL
     Indication: Product used for unknown indication
     Dosage: UNK
     Route: 065

REACTIONS (14)
  - Palpitations [Unknown]
  - Nasal congestion [Unknown]
  - Respiratory tract congestion [Unknown]
  - Back pain [Not Recovered/Not Resolved]
  - Osteoporosis [Unknown]
  - Cough [Unknown]
  - Dry throat [Unknown]
  - Dry mouth [Unknown]
  - Diarrhoea [Unknown]
  - Face oedema [Unknown]
  - Oedema peripheral [Unknown]
  - Head discomfort [Unknown]
  - Hypotension [Unknown]
  - Headache [Unknown]

NARRATIVE: CASE EVENT DATE: 20220301
